FAERS Safety Report 7504394-X (Version None)
Quarter: 2011Q2

REPORT INFORMATION
  Report Type: 
  Country: None (occurrence: None)
  Receive Date: 20110525
  Receipt Date: 20110516
  Transmission Date: 20111010
  Serious: Yes (Life-Threatening, Hospitalization)
  Sender: FDA-Public Use
  Company Number: US-BAXTER-2011BH016133

PATIENT
  Age: 71 Year
  Sex: Male

DRUGS (2)
  1. CLINIMIX E 2.75/10 SULFITE-FREE W/ ELECT IN DEXTROSE 10% W/ CALCIUM [Suspect]
     Indication: PARENTERAL NUTRITION
     Route: 051
     Dates: start: 20110505, end: 20110505
  2. CLINIMIX 2.75/10 SULFITE FREE IN DEXTROSE 10% [Suspect]

REACTIONS (3)
  - UNRESPONSIVE TO STIMULI [None]
  - BLOOD POTASSIUM INCREASED [None]
  - WRONG TECHNIQUE IN DRUG USAGE PROCESS [None]
